FAERS Safety Report 6714906-1 (Version None)
Quarter: 2010Q2

REPORT INFORMATION
  Report Type: 
  Country: None (occurrence: None)
  Receive Date: 20100507
  Receipt Date: 20100427
  Transmission Date: 20101027
  Serious: Yes (Other)
  Sender: FDA-Public Use
  Company Number: US-JNJFOC-20100407735

PATIENT
  Age: 73 Year
  Sex: Female

DRUGS (7)
  1. REMICADE [Suspect]
     Indication: RHEUMATOID ARTHRITIS
     Route: 042
  2. NORVASC [Concomitant]
     Indication: HYPERTENSION
  3. IBUPROFEN [Concomitant]
     Indication: PAIN
  4. TYLENOL-500 [Concomitant]
     Indication: PAIN
  5. FLEXERIL [Concomitant]
  6. SYNTHROID [Concomitant]
     Indication: HYPOTHYROIDISM
  7. METHOTREXATE [Concomitant]
     Indication: RHEUMATOID ARTHRITIS

REACTIONS (7)
  - BLISTER [None]
  - EXTRASYSTOLES [None]
  - MALAISE [None]
  - OROPHARYNGEAL PAIN [None]
  - ORTHOSTATIC HYPOTENSION [None]
  - SKIN EXFOLIATION [None]
  - SYNCOPE [None]
